FAERS Safety Report 11045135 (Version 1)
Quarter: 2015Q2

REPORT INFORMATION
  Report Type: Spontaneous
  Country: JP (occurrence: JP)
  Receive Date: 20150417
  Receipt Date: 20150417
  Transmission Date: 20150821
  Serious: Yes (Other)
  Sender: FDA-Public Use
  Company Number: JP-CIPLA LTD.-2015JP02868

PATIENT

DRUGS (4)
  1. ABACAVIR [Suspect]
     Active Substance: ABACAVIR
     Indication: HIV INFECTION
     Route: 065
  2. LAMIVUDINE. [Suspect]
     Active Substance: LAMIVUDINE
     Indication: HIV INFECTION
     Dosage: UNK
     Route: 065
  3. ATAZANAVIR/RITONAVIR (ATAZANAVIR, RITONAVIR) UNKNOWN [Suspect]
     Active Substance: ATAZANAVIR\RITONAVIR
     Dosage: 100MG
  4. ATAZANAVIR/RITONAVIR (ATAZANAVIR, RITONAVIR) UNKNOWN [Suspect]
     Active Substance: ATAZANAVIR\RITONAVIR
     Indication: HIV INFECTION
     Dosage: 300 MG
     Route: 065

REACTIONS (7)
  - Renal tubular atrophy [Unknown]
  - Tubulointerstitial nephritis [Unknown]
  - Renal impairment [Not Recovered/Not Resolved]
  - Proteinuria [Unknown]
  - Haematuria [Unknown]
  - Blood creatinine increased [Unknown]
  - Kidney fibrosis [Unknown]
